FAERS Safety Report 4444059-4 (Version None)
Quarter: 2004Q3

REPORT INFORMATION
  Report Type: 
  Country: None (occurrence: None)
  Receive Date: 20040729
  Receipt Date: 20030718
  Transmission Date: 20050211
  Serious: Yes (Death)
  Sender: FDA-Public Use
  Company Number: USA-2003-0008749

PATIENT
  Age: 49 Year
  Sex: Female

DRUGS (10)
  1. MORPHINE SULFATE [Suspect]
  2. XANAX [Suspect]
  3. ZANTAC [Concomitant]
  4. VIOKASE [Concomitant]
  5. REGLAN [Concomitant]
  6. LORTAB [Concomitant]
  7. ATIVAN [Concomitant]
  8. RESTORIL [Concomitant]
  9. TYLENOL W/ CODEINE NO. 3 [Concomitant]
  10. STADOL [Concomitant]

REACTIONS (2)
  - ACCIDENTAL OVERDOSE [None]
  - MULTIPLE DRUG OVERDOSE [None]
